FAERS Safety Report 6500021-9 (Version None)
Quarter: 2009Q4

REPORT INFORMATION
  Report Type: 
  Country: None (occurrence: None)
  Receive Date: 20091211
  Receipt Date: 20091211
  Transmission Date: 20100525
  Serious: No
  Sender: FDA-Public Use
  Company Number: None

PATIENT
  Sex: Female
  Weight: 74.8435 kg

DRUGS (1)
  1. ZETIA [Suspect]
     Indication: BLOOD CHOLESTEROL INCREASED
     Dosage: 10 MG. ONE A DAY TOOK 8 PILLS FROM 11/06/09 11/14/09 HAVE 22 LEFT
     Dates: start: 20091106

REACTIONS (5)
  - DYSGRAPHIA [None]
  - DYSPHONIA [None]
  - DYSPNOEA [None]
  - MICTURITION URGENCY [None]
  - PANIC REACTION [None]
